FAERS Safety Report 6262333-6 (Version None)
Quarter: 2009Q3

REPORT INFORMATION
  Report Type: 
  Country: None (occurrence: None)
  Receive Date: 20090709
  Receipt Date: 20090702
  Transmission Date: 20100115
  Serious: Yes (Other)
  Sender: FDA-Public Use
  Company Number: PHHY2009CA25606

PATIENT
  Sex: Female

DRUGS (8)
  1. ACLASTA [Suspect]
     Indication: OSTEOPOROSIS
     Dosage: 5 MG/100 ML
     Route: 042
     Dates: start: 20090504, end: 20090504
  2. PERINDOPRIL ERBUMINE [Concomitant]
     Dosage: 2 MG, QD
     Dates: start: 20090617
  3. ELTROXIN [Concomitant]
     Dosage: 0.15 MG, QD
     Route: 048
     Dates: start: 20090617
  4. NEXIUM [Concomitant]
     Route: 048
  5. ANTIDEPRESSANTS [Concomitant]
     Route: 048
  6. VITAMIN D3 [Concomitant]
  7. RHINOCORT [Concomitant]
  8. TYLENOL (CAPLET) [Concomitant]

REACTIONS (10)
  - ARTHRALGIA [None]
  - ERYTHEMA [None]
  - MYALGIA [None]
  - NAUSEA [None]
  - PRURITUS [None]
  - RASH MACULAR [None]
  - RASH PAPULAR [None]
  - SKIN BURNING SENSATION [None]
  - THROAT IRRITATION [None]
  - URTICARIA [None]
